FAERS Safety Report 7789934-8 (Version None)
Quarter: 2011Q3

REPORT INFORMATION
  Report Type: 
  Country: None (occurrence: None)
  Receive Date: 20110930
  Receipt Date: 20101025
  Transmission Date: 20111222
  Serious: No
  Sender: FDA-Public Use
  Company Number: US-ASTRAZENECA-2010SE50456

PATIENT
  Age: 885 Month
  Sex: Female
  Weight: 55.3 kg

DRUGS (4)
  1. ARIMIDEX [Suspect]
     Indication: BREAST CANCER
     Route: 048
     Dates: start: 20091201
  2. DIGOXIN [Concomitant]
  3. SYNTHROID [Concomitant]
  4. XELODA [Concomitant]

REACTIONS (2)
  - VISION BLURRED [None]
  - CATARACT OPERATION [None]
